FAERS Safety Report 10453617 (Version 3)
Quarter: 2014Q4

REPORT INFORMATION
  Report Type: Spontaneous
  Country: IT (occurrence: IT)
  Receive Date: 20140915
  Receipt Date: 20141013
  Transmission Date: 20150528
  Serious: Yes (Hospitalization)
  Sender: FDA-Public Use
  Company Number: IT-PFIZER INC-2014251990

PATIENT
  Age: 50 Year
  Sex: Male
  Weight: 91 kg

DRUGS (2)
  1. ARIXTRA [Concomitant]
     Active Substance: FONDAPARINUX SODIUM
     Indication: PULMONARY EMBOLISM
     Dosage: 7.5 MG, UNK
     Route: 058
     Dates: start: 20140801, end: 20140812
  2. INLYTA [Suspect]
     Active Substance: AXITINIB
     Indication: RENAL CANCER
     Dosage: 10 MG, DAILY
     Route: 048
     Dates: start: 20140703

REACTIONS (1)
  - Hepatic haematoma [Not Recovered/Not Resolved]

NARRATIVE: CASE EVENT DATE: 20140811
